FAERS Safety Report 6424599-9 (Version None)
Quarter: 2009Q4

REPORT INFORMATION
  Report Type: 
  Country: None (occurrence: None)
  Receive Date: 20091103
  Receipt Date: 20091026
  Transmission Date: 20100525
  Serious: Yes (Hospitalization)
  Sender: FDA-Public Use
  Company Number: DE-AVENTIS-200912602DE

PATIENT
  Age: 63 Year
  Sex: Male
  Weight: 97 kg

DRUGS (3)
  1. DOCETAXEL [Suspect]
     Route: 042
     Dates: start: 20081220, end: 20081220
  2. CAPECITABINE [Suspect]
     Route: 048
  3. CISPLATIN [Suspect]
     Route: 042

REACTIONS (2)
  - ANGINA PECTORIS [None]
  - CONDITION AGGRAVATED [None]
